FAERS Safety Report 5494511-8 (Version None)
Quarter: 2007Q4

REPORT INFORMATION
  Report Type: 
  Country: None (occurrence: None)
  Receive Date: 20071024
  Receipt Date: 20071012
  Transmission Date: 20080405
  Serious: Yes (Other)
  Sender: FDA-Public Use
  Company Number: JP-JNJFOC-20071004410

PATIENT
  Age: 71 Year
  Sex: Male

DRUGS (2)
  1. POLLAKISU [Suspect]
     Indication: DRUG USE FOR UNKNOWN INDICATION
     Route: 048
  2. OTHER THERAPEUTIC DRUGS [Concomitant]
     Route: 065

REACTIONS (2)
  - PLATELET COUNT DECREASED [None]
  - PURPURA [None]
